FAERS Safety Report 11121569 (Version 1)
Quarter: 2015Q2

REPORT INFORMATION
  Report Type: Spontaneous
  Country: FR (occurrence: None)
  Receive Date: 20150515
  Receipt Date: 20150515
  Transmission Date: 20150821
  Serious: Yes (Other)
  Sender: FDA-Public Use
  Company Number: FK201502182

PATIENT
  Age: 44 Year
  Sex: Female

DRUGS (2)
  1. LYMECYCLINE (LYMECYCLINE) [Suspect]
     Active Substance: LYMECYCLINE
     Indication: INFECTION
  2. AZITHROMYCIN [Suspect]
     Active Substance: AZITHROMYCIN ANHYDROUS
     Indication: INFECTION

REACTIONS (4)
  - Hepatic failure [None]
  - Jaundice cholestatic [None]
  - Drug reaction with eosinophilia and systemic symptoms [None]
  - Hepatitis [None]
